FAERS Safety Report 9633535 (Version 1)
Quarter: 2013Q4

REPORT INFORMATION
  Report Type: Report from Study
  Country: MX (occurrence: MX)
  Receive Date: 20131021
  Receipt Date: 20131021
  Transmission Date: 20140711
  Serious: Yes (Other)
  Sender: FDA-Public Use
  Company Number: PHHY2013MX117868

PATIENT
  Age: 60 Year
  Sex: Male

DRUGS (7)
  1. GALVUS MET [Suspect]
     Indication: DIABETES MELLITUS
     Dosage: 0.5 DF (1000MG METF/ 50MG VILD), TID
     Route: 048
     Dates: start: 20130919
  2. EXFORGE [Suspect]
     Indication: HYPERTENSION
     Dosage: 0.5 DF (320MG VALS/ 5MG AMLO), UNK, IN THE MORNING
     Dates: start: 20130919
  3. COMPETACT [Concomitant]
     Dosage: 1 UKN, IN THE EVENING
     Dates: start: 20130919
  4. PIOGLITAZONA [Concomitant]
     Dosage: 1 UKN, IN THE EVENING
     Dates: start: 20130919
  5. METFORMIN [Concomitant]
     Dosage: 850 MG, UNK
  6. REDEVANT [Concomitant]
     Dosage: 7 UKN, DAILY
     Dates: start: 20130919
  7. ASPIRINA [Concomitant]
     Indication: HYPERTENSION
     Dosage: 0.5 UKN, IN THE EVENING
     Dates: start: 20130919

REACTIONS (4)
  - Blood cholesterol abnormal [Not Recovered/Not Resolved]
  - Hypertension [Not Recovered/Not Resolved]
  - Blood glucose increased [Not Recovered/Not Resolved]
  - Wrong technique in drug usage process [Not Recovered/Not Resolved]
